FAERS Safety Report 8379391-5 (Version None)
Quarter: 2012Q2

REPORT INFORMATION
  Report Type: 
  Country: None (occurrence: None)
  Receive Date: 20120523
  Receipt Date: 20120515
  Transmission Date: 20120825
  Serious: Yes (Hospitalization)
  Sender: FDA-Public Use
  Company Number: FR-ABBOTT-12P-056-0915803-00

PATIENT
  Age: 12 Year
  Sex: Female

DRUGS (3)
  1. VALPROIC ACID [Suspect]
     Indication: EPILEPSY
     Route: 048
     Dates: start: 20060801, end: 20110801
  2. DEPAKENE [Suspect]
     Indication: EPILEPSY
     Route: 048
     Dates: start: 20110831, end: 20111228
  3. DEPAKENE [Suspect]
     Route: 048
     Dates: start: 20040101, end: 20060801

REACTIONS (5)
  - COGNITIVE DISORDER [None]
  - VOMITING [None]
  - PANCREATITIS [None]
  - ALOPECIA [None]
  - LIPASE INCREASED [None]
